FAERS Safety Report 13558660 (Version 4)
Quarter: 2025Q3

REPORT INFORMATION
  Report Type: Report from Study
  Country: JP (occurrence: JP)
  Receive Date: 20170518
  Receipt Date: 20250803
  Transmission Date: 20251021
  Serious: Yes (Life-Threatening, Other)
  Sender: ALEXION PHARMACEUTICALS
  Company Number: JP-ALXN-A201701035AA

PATIENT
  Age: 2 Year
  Sex: Female
  Weight: 8.04 kg

DRUGS (6)
  1. STRENSIQ [Suspect]
     Active Substance: ASFOTASE ALFA
     Indication: Hypophosphatasia
     Dosage: 2 MILLIGRAM/KILOGRAM, TIW
     Dates: start: 20141029, end: 20150909
  2. STRENSIQ [Suspect]
     Active Substance: ASFOTASE ALFA
     Dosage: 2 MILLIGRAM/KILOGRAM, TIW
     Dates: start: 20150911, end: 20170605
  3. STRENSIQ [Suspect]
     Active Substance: ASFOTASE ALFA
     Dosage: 1 MG/KG, SIX TIMES/WEEK
     Dates: start: 20170606, end: 20170905
  4. STRENSIQ [Suspect]
     Active Substance: ASFOTASE ALFA
     Dosage: 2 MILLIGRAM/KILOGRAM, TIW
     Dates: start: 20170906, end: 20171016
  5. STRENSIQ [Suspect]
     Active Substance: ASFOTASE ALFA
     Dosage: 1 MILLIGRAM/KILOGRAM, TIW
     Dates: start: 20171017, end: 20171114
  6. STRENSIQ [Suspect]
     Active Substance: ASFOTASE ALFA
     Dosage: 3 MILLIGRAM/KILOGRAM, TIW
     Dates: start: 20171115

REACTIONS (14)
  - Hydrocephalus [Recovering/Resolving]
  - Rickets [Recovering/Resolving]
  - Condition aggravated [Recovering/Resolving]
  - Arnold-Chiari malformation [Not Recovered/Not Resolved]
  - Craniosynostosis [Recovering/Resolving]
  - Genital haemorrhage [Recovered/Resolved]
  - Hypothyroidism [Recovered/Resolved]
  - Neutralising antibodies positive [Recovered/Resolved]
  - Drug ineffective [Unknown]
  - Bronchitis [Recovered/Resolved]
  - Dermatitis [Recovered/Resolved]
  - Dermatitis [Recovered/Resolved]
  - Dermatitis [Recovered/Resolved]
  - Eczema asteatotic [Recovered/Resolved]

NARRATIVE: CASE EVENT DATE: 20160325
